FAERS Safety Report 8491862-X (Version None)
Quarter: 2012Q3

REPORT INFORMATION
  Report Type: 
  Country: None (occurrence: None)
  Receive Date: 20120706
  Receipt Date: 20110808
  Transmission Date: 20120928
  Serious: No
  Sender: FDA-Public Use
  Company Number: US-GLAXOSMITHKLINE-A0940078A

PATIENT
  Age: 63 Year
  Sex: Female

DRUGS (7)
  1. METFORMIN HCL [Concomitant]
  2. DETROL [Concomitant]
  3. NORVASC [Concomitant]
  4. GLUCOTROL XL [Concomitant]
  5. FLOVENT [Suspect]
     Indication: ASTHMA
     Dosage: 2PUFF TWICE PER DAY
     Route: 055
  6. ACCOLATE [Concomitant]
  7. ACIPHEX [Concomitant]

REACTIONS (4)
  - CHEST DISCOMFORT [None]
  - PRODUCT QUALITY ISSUE [None]
  - DRUG INEFFECTIVE [None]
  - WHEEZING [None]
